FAERS Safety Report 12455573 (Version 1)
Quarter: 2016Q2

REPORT INFORMATION
  Report Type: Spontaneous
  Country: US (occurrence: None)
  Receive Date: 20160609
  Receipt Date: 20160609
  Transmission Date: 20160815
  Serious: No
  Sender: FDA-Public Use
  Company Number: None

PATIENT

DRUGS (2)
  1. ADRENALIN CHLORIDE SOLUTION EPINEPHRINE NASAL PAR PHARMACEUTICAL, INC . [Suspect]
     Active Substance: EPINEPHRINE HYDROCHLORIDE
     Dosage: SOLUTION NASAL 30ML
     Route: 045
  2. ADRENALIN [Suspect]
     Active Substance: EPINEPHRINE
     Dosage: INJECTION  MULTIPLE DOSE VIAL 30ML

REACTIONS (1)
  - Product packaging confusion [None]
